FAERS Safety Report 6111808-9 (Version None)
Quarter: 2009Q1

REPORT INFORMATION
  Report Type: 
  Country: None (occurrence: None)
  Receive Date: 20090311
  Receipt Date: 20090310
  Transmission Date: 20090719
  Serious: Yes (Other)
  Sender: FDA-Public Use
  Company Number: TR-ROCHE-615331

PATIENT
  Age: 66 Year
  Sex: Male

DRUGS (2)
  1. CAPECITABINE [Suspect]
     Dosage: DAYS 1-14 OF 21. FIVE CYCLES.
     Route: 065
     Dates: start: 20040101, end: 20040601
  2. OXALIPLATIN [Suspect]
     Dosage: DAY 1 OF 21. FIVE CYCLES.
     Route: 065
     Dates: start: 20040101, end: 20040601

REACTIONS (2)
  - CHRONIC MYELOID LEUKAEMIA [None]
  - DRUG INTOLERANCE [None]
